FAERS Safety Report 5104176-2 (Version None)
Quarter: 2006Q3

REPORT INFORMATION
  Report Type: 
  Country: None (occurrence: None)
  Receive Date: 20060911
  Receipt Date: 20060828
  Transmission Date: 20061208
  Serious: Yes (Life-Threatening, Hospitalization)
  Sender: FDA-Public Use
  Company Number: 2006RR-03577

PATIENT
  Age: 33 Year
  Sex: Female

DRUGS (3)
  1. FLUCONAZOLE [Suspect]
     Indication: PNEUMONIA FUNGAL
     Dosage: 200 MG, QD, INTRAVENOUS; 100 MG, QD, INTRAVENOUS
     Route: 042
  2. DOMPERIDONE (DOMPERIDONE) [Concomitant]
  3. PIPERACILLIN [Concomitant]

REACTIONS (7)
  - BRADYCARDIA [None]
  - CANDIDA PNEUMONIA [None]
  - DISEASE RECURRENCE [None]
  - HAEMODIALYSIS [None]
  - RENAL FAILURE [None]
  - RESPIRATORY FAILURE [None]
  - TORSADE DE POINTES [None]
